FAERS Safety Report 21122961 (Version 1)
Quarter: 2022Q3

REPORT INFORMATION
  Report Type: Spontaneous
  Country: US (occurrence: US)
  Receive Date: 20220724
  Receipt Date: 20220724
  Transmission Date: 20221027
  Serious: No
  Sender: FDA-Public Use
  Company Number: US-JNJFOC-20220720313

PATIENT
  Sex: Female

DRUGS (2)
  1. XARELTO [Suspect]
     Active Substance: RIVAROXABAN
     Indication: Product used for unknown indication
     Route: 048
  2. XARELTO [Suspect]
     Active Substance: RIVAROXABAN
     Route: 048

REACTIONS (9)
  - Somnolence [Unknown]
  - Hangover [Unknown]
  - Malaise [Unknown]
  - Oedema peripheral [Unknown]
  - Paraesthesia [Unknown]
  - Feeling jittery [Unknown]
  - Device information output issue [Unknown]
  - Incorrect dose administered [Unknown]
  - Treatment noncompliance [Unknown]
